FAERS Safety Report 9194018 (Version 2)
Quarter: 2013Q2

REPORT INFORMATION
  Report Type: Spontaneous
  Country: PH (occurrence: PH)
  Receive Date: 20130327
  Receipt Date: 20130410
  Transmission Date: 20140414
  Serious: Yes (Death)
  Sender: FDA-Public Use
  Company Number: PH-BAXTER-2013BAX010675

PATIENT
  Sex: Male
  Weight: 60 kg

DRUGS (1)
  1. DIANEAL PD2 WITH 1.5% DEXTROSE [Suspect]
     Indication: PERITONEAL DIALYSIS
     Route: 033
     Dates: start: 20101222, end: 20130310

REACTIONS (2)
  - Renal failure chronic [Fatal]
  - Sepsis [Fatal]
